FAERS Safety Report 17897691 (Version 2)
Quarter: 2020Q2

REPORT INFORMATION
  Report Type: Spontaneous
  Country: US (occurrence: US)
  Receive Date: 20200616
  Receipt Date: 20200617
  Transmission Date: 20200714
  Serious: No
  Sender: FDA-Public Use
  Company Number: US-BIOGEN-2020BI00875970

PATIENT
  Age: 46 Year
  Sex: Female

DRUGS (3)
  1. TECFIDERA [Suspect]
     Active Substance: DIMETHYL FUMARATE
     Indication: MULTIPLE SCLEROSIS
     Route: 048
     Dates: start: 20200511
  2. TECFIDERA [Suspect]
     Active Substance: DIMETHYL FUMARATE
     Route: 065
     Dates: start: 20200508, end: 20200605
  3. PEPCID AC [Concomitant]
     Active Substance: FAMOTIDINE
     Route: 065

REACTIONS (6)
  - Abdominal pain upper [Recovered/Resolved]
  - Flushing [Recovered/Resolved]
  - Chest discomfort [Unknown]
  - Dyspepsia [Recovered/Resolved]
  - Anxiety [Unknown]
  - Pruritus [Unknown]

NARRATIVE: CASE EVENT DATE: 20200512
